FAERS Safety Report 4782384-8 (Version None)
Quarter: 2005Q3

REPORT INFORMATION
  Report Type: 
  Country: None (occurrence: None)
  Receive Date: 20050929
  Receipt Date: 20050915
  Transmission Date: 20060218
  Serious: Yes (Disabling)
  Sender: FDA-Public Use
  Company Number: 2005AC01351

PATIENT
  Age: 8679 Day
  Sex: Female

DRUGS (3)
  1. SEROQUEL [Suspect]
     Route: 048
     Dates: start: 20031001
  2. EFFEXOR [Suspect]
     Route: 048
     Dates: start: 20020101
  3. EFFEXOR [Suspect]
     Route: 048

REACTIONS (1)
  - FACIAL PALSY [None]
